FAERS Safety Report 5536727-8 (Version None)
Quarter: 2007Q4

REPORT INFORMATION
  Report Type: 
  Country: None (occurrence: None)
  Receive Date: 20071204
  Receipt Date: 20071119
  Transmission Date: 20080405
  Serious: Yes (Other)
  Sender: FDA-Public Use
  Company Number: S07-FRA-06080-01

PATIENT
  Age: 48 Year
  Sex: Female

DRUGS (2)
  1. CITALOPRAM HYDROBROMIDE [Suspect]
     Indication: DEPRESSION
     Dosage: 20 MG QD PO
     Route: 048
     Dates: start: 20060101, end: 20071116
  2. LANSOR (LANSOPRAZOLE) [Concomitant]

REACTIONS (3)
  - BREAST DISCHARGE [None]
  - HYPERPROLACTINAEMIA [None]
  - PITUITARY TUMOUR [None]
